FAERS Safety Report 7731890-2 (Version None)
Quarter: 2011Q3

REPORT INFORMATION
  Report Type: 
  Country: None (occurrence: None)
  Receive Date: 20110906
  Receipt Date: 20110830
  Transmission Date: 20111222
  Serious: Yes (Hospitalization)
  Sender: FDA-Public Use
  Company Number: FR-PFIZER INC-2011201301

PATIENT
  Age: 69 Year
  Sex: Female

DRUGS (13)
  1. VANCOMYCIN HCL [Suspect]
     Dosage: 1 G, 2X/DAY
     Route: 042
     Dates: start: 20110211
  2. NICARDIPINE HCL [Concomitant]
     Indication: HYPERTENSION
     Dosage: 50 MG, 2X/DAY
     Route: 048
  3. VANCOMYCIN HCL [Suspect]
     Dosage: 1 G, 3X/DAY
     Route: 042
     Dates: end: 20110222
  4. FUCIDINE CAP [Suspect]
     Dosage: 500 MG, 3X/DAY
     Route: 048
     Dates: start: 20110310, end: 20110311
  5. ACETAMINOPHEN AND TRAMADOL HCL [Concomitant]
     Indication: PAIN
     Dosage: 1 DF, 3X/DAY
     Route: 048
     Dates: start: 20110213, end: 20110301
  6. RIFAMPICIN [Suspect]
     Indication: ANTIBIOTIC THERAPY
     Dosage: 600 MG, 2X/DAY
     Route: 048
     Dates: start: 20110211, end: 20110302
  7. TARGOCID [Suspect]
     Indication: ANTIBIOTIC THERAPY
     Dosage: 400 MG, 1X/DAY
     Route: 058
     Dates: start: 20110225, end: 20110302
  8. GENTAMICIN [Suspect]
     Dosage: 120 MG, 2X/DAY
     Route: 042
     Dates: start: 20110209, end: 20110211
  9. VALSARTAN  AND HYDROCHLOROTHIAZIDE [Concomitant]
     Indication: HYPERTENSION
     Dosage: 1 DF, 1X/DAY
     Route: 048
  10. OXACILLIN [Suspect]
     Dosage: 2 G, 5 TIMES DAILY
     Route: 042
     Dates: start: 20110209, end: 20110211
  11. LOVENOX [Concomitant]
     Indication: COAGULOPATHY
     Dosage: 1 DF, 1X/DAY
     Route: 058
     Dates: start: 20110208, end: 20110313
  12. CLINDAMYCIN HCL [Suspect]
     Dosage: 600 MG, 4X/DAY
     Route: 048
     Dates: start: 20110310, end: 20110311
  13. TARGOCID [Concomitant]
     Dosage: 400 MG, 2X/DAY
     Route: 042
     Dates: start: 20110222, end: 20110224

REACTIONS (1)
  - DRUG RASH WITH EOSINOPHILIA AND SYSTEMIC SYMPTOMS [None]
